FAERS Safety Report 10255985 (Version 1)
Quarter: 2014Q2

REPORT INFORMATION
  Report Type: Spontaneous
  Country: JP (occurrence: JP)
  Receive Date: 20140624
  Receipt Date: 20140624
  Transmission Date: 20141212
  Serious: Yes (Hospitalization)
  Sender: FDA-Public Use
  Company Number: JP-GLAXOSMITHKLINE-B1006104A

PATIENT
  Sex: Female

DRUGS (2)
  1. VOTRIENT 200MG [Suspect]
     Indication: ANGIOSARCOMA
     Dosage: 800MG PER DAY
     Route: 048
     Dates: start: 20130514, end: 201406
  2. PICIBANIL [Concomitant]
     Indication: PNEUMOTHORAX
     Route: 038
     Dates: start: 201406, end: 201406

REACTIONS (1)
  - Pneumothorax [Recovered/Resolved]
